FAERS Safety Report 10262850 (Version 2)
Quarter: 2014Q2

REPORT INFORMATION
  Report Type: Report from Study
  Country: US (occurrence: US)
  Receive Date: 20140626
  Receipt Date: 20140626
  Transmission Date: 20141212
  Serious: Yes (Other)
  Sender: FDA-Public Use
  Company Number: US-MYLANLABS-2013S1019459

PATIENT
  Age: 37 Year
  Sex: Male

DRUGS (11)
  1. CLOZAPINE TABLETS [Suspect]
     Route: 048
     Dates: end: 20131022
  2. CLONAZEPAM [Concomitant]
  3. DIVALPROEX [Concomitant]
  4. GABAPENTIN [Concomitant]
  5. LISINOPRIL [Concomitant]
  6. OMEPRAZOLE [Concomitant]
  7. PAROXETINE [Concomitant]
  8. PRINOPRIL [Concomitant]
  9. PROPRANOLOL [Concomitant]
  10. RISPERDAL [Concomitant]
  11. SIMVASTATIN [Concomitant]

REACTIONS (2)
  - Granulocytopenia [Recovered/Resolved]
  - Leukopenia [Recovered/Resolved]
